FAERS Safety Report 11757348 (Version 1)
Quarter: 2015Q4

REPORT INFORMATION
  Report Type: Spontaneous
  Country: JP (occurrence: JP)
  Receive Date: 20151120
  Receipt Date: 20151120
  Transmission Date: 20160304
  Serious: No
  Sender: FDA-Public Use
  Company Number: JP-ELI_LILLY_AND_COMPANY-JP201511005958

PATIENT
  Sex: Female

DRUGS (7)
  1. CYMBALTA [Suspect]
     Active Substance: DULOXETINE HYDROCHLORIDE
     Indication: DEPRESSION
     Dosage: 20 MG, QD
     Route: 048
     Dates: start: 201505
  2. NAUZELIN [Suspect]
     Active Substance: DOMPERIDONE
     Indication: NAUSEA
     Dosage: 30 UNK, UNK
     Route: 048
  3. LEXOTAN [Suspect]
     Active Substance: BROMAZEPAM
     Indication: PSYCHOSOMATIC DISEASE
     Dosage: UNK
     Route: 048
  4. RIZE                               /00624801/ [Concomitant]
     Active Substance: CLOTIAZEPAM
     Indication: PSYCHOSOMATIC DISEASE
     Dosage: UNK
     Route: 048
  5. GABA [Concomitant]
     Active Substance: .GAMMA.-AMINOBUTYRIC ACID
     Indication: DEPRESSION
     Dosage: UNK
     Route: 048
     Dates: end: 2015
  6. GABA [Suspect]
     Active Substance: .GAMMA.-AMINOBUTYRIC ACID
     Indication: DEPRESSION
     Dosage: UNK
     Route: 048
     Dates: start: 2015
  7. NAUZELIN [Suspect]
     Active Substance: DOMPERIDONE
     Indication: VOMITING

REACTIONS (2)
  - Hepatic function abnormal [Unknown]
  - Product quality issue [None]

NARRATIVE: CASE EVENT DATE: 201510
